FAERS Safety Report 4990783-4 (Version None)
Quarter: 2006Q2

REPORT INFORMATION
  Report Type: 
  Country: None (occurrence: None)
  Receive Date: 20060503
  Receipt Date: 20060303
  Transmission Date: 20061013
  Serious: Yes (Other)
  Sender: FDA-Public Use
  Company Number: JP-BOEHRINGER INGELHEIM PHARMACEUTICALS, INC.-2006-BP-02767NB

PATIENT
  Age: 76 Year
  Sex: Female

DRUGS (5)
  1. MICARDIS [Suspect]
     Indication: HYPERTENSION
     Route: 048
     Dates: start: 20060126, end: 20060206
  2. DIOVAN [Concomitant]
     Route: 048
     Dates: start: 20060207
  3. PARIET [Concomitant]
     Route: 048
  4. GAMOFA [Concomitant]
     Route: 048
  5. OMEPRAL [Concomitant]
     Route: 048

REACTIONS (3)
  - ANAEMIA [None]
  - LIVER DISORDER [None]
  - RENAL DISORDER [None]
